FAERS Safety Report 14531240 (Version 2)
Quarter: 2018Q2

REPORT INFORMATION
  Report Type: Not Available
  Country: US (occurrence: US)
  Receive Date: 20180214
  Receipt Date: 20180406
  Transmission Date: 20180711
  Serious: No
  Sender: FDA-Public Use
  Company Number: US-NEUROCRINE BIOSCIENCES INC.-2018NBI00174

PATIENT
  Age: 63 Year
  Sex: Male

DRUGS (8)
  1. INGREZZA [Suspect]
     Active Substance: VALBENAZINE
     Indication: TARDIVE DYSKINESIA
     Route: 048
     Dates: start: 20171215
  2. OMEPRAZOLE. [Concomitant]
     Active Substance: OMEPRAZOLE
  3. SEROQUEL [Concomitant]
     Active Substance: QUETIAPINE FUMARATE
  4. PRAVASTATIN. [Concomitant]
     Active Substance: PRAVASTATIN
  5. HYDROCODONE [Concomitant]
     Active Substance: HYDROCODONE
  6. ALLOPURINOL. [Concomitant]
     Active Substance: ALLOPURINOL
  7. GABAPENTIN. [Concomitant]
     Active Substance: GABAPENTIN
  8. SERTRALINE [Concomitant]
     Active Substance: SERTRALINE HYDROCHLORIDE

REACTIONS (1)
  - Mania [Unknown]

NARRATIVE: CASE EVENT DATE: 20180101
